FAERS Safety Report 4535314-8 (Version None)
Quarter: 2004Q4

REPORT INFORMATION
  Report Type: 
  Country: None (occurrence: None)
  Receive Date: 20041214
  Receipt Date: 20040920
  Transmission Date: 20050328
  Serious: No
  Sender: FDA-Public Use
  Company Number: 2004237106US

PATIENT
  Age: 71 Year
  Sex: Female

DRUGS (8)
  1. BEXTRA [Suspect]
     Indication: ARTHRALGIA
     Dosage: 10 MG, QD, ORAL
     Route: 048
     Dates: start: 20040910
  2. TYLENOL [Concomitant]
  3. PHENYTOIN [Concomitant]
  4. ASPIRIN [Concomitant]
  5. GEMFIBROZIL [Concomitant]
  6. ATENOLOL [Concomitant]
  7. COZAAR [Concomitant]
  8. GLYBURIDE [Concomitant]

REACTIONS (5)
  - AMNESIA [None]
  - CONVERSION DISORDER [None]
  - DEPRESSION [None]
  - FEELING COLD [None]
  - PAIN EXACERBATED [None]
